FAERS Safety Report 16338939 (Version 4)
Quarter: 2024Q4

REPORT INFORMATION
  Report Type: Spontaneous
  Country: DE (occurrence: DE)
  Receive Date: 20190521
  Receipt Date: 20241018
  Transmission Date: 20250114
  Serious: Yes (Hospitalization, Other)
  Sender: NOVARTIS
  Company Number: PHHY2019DE111968

PATIENT
  Age: 20 Year
  Sex: Female

DRUGS (4)
  1. GILENYA [Suspect]
     Active Substance: FINGOLIMOD HYDROCHLORIDE
     Indication: Multiple sclerosis
     Dosage: 0.5 MG
     Route: 048
     Dates: start: 20160721, end: 2019
  2. GILENYA [Suspect]
     Active Substance: FINGOLIMOD HYDROCHLORIDE
     Dosage: UNK
     Route: 065
     Dates: start: 2017, end: 201904
  3. METHYLPREDNISOLONE [Concomitant]
     Active Substance: METHYLPREDNISOLONE
     Indication: Product used for unknown indication
     Dosage: 1000 MG (FIVE TIMES)
     Route: 042
     Dates: start: 2019
  4. METHYLPREDNISOLONE [Concomitant]
     Active Substance: METHYLPREDNISOLONE
     Dosage: 2000 MG (FIVE TIMES)
     Route: 042
     Dates: start: 2019

REACTIONS (16)
  - Multiple sclerosis relapse [Recovered/Resolved]
  - Progressive multifocal leukoencephalopathy [Unknown]
  - Speech disorder [Unknown]
  - Sensory disturbance [Unknown]
  - Hemianopia [Recovering/Resolving]
  - Gait disturbance [Recovered/Resolved]
  - Aphasia [Recovered/Resolved]
  - Alexia [Recovered/Resolved]
  - Agraphia [Recovered/Resolved]
  - Sensorimotor disorder [Recovered/Resolved]
  - Hemihypoaesthesia [Unknown]
  - Lymphopenia [Recovered/Resolved]
  - Visual field defect [Unknown]
  - Inflammation [Unknown]
  - Balance disorder [Unknown]
  - Coordination abnormal [Unknown]

NARRATIVE: CASE EVENT DATE: 20160823
